FAERS Safety Report 22158359 (Version 3)
Quarter: 2023Q2

REPORT INFORMATION
  Report Type: Report from Study
  Country: BR (occurrence: BR)
  Receive Date: 20230331
  Receipt Date: 20230413
  Transmission Date: 20230722
  Serious: Yes (Life-Threatening, Hospitalization)
  Sender: FDA-Public Use
  Company Number: BR-AMGEN-BRASL2023052793

PATIENT
  Age: 10 Year
  Sex: Female

DRUGS (1)
  1. BLINCYTO [Suspect]
     Active Substance: BLINATUMOMAB
     Indication: Acute lymphocytic leukaemia
     Dosage: 28 DAYS
     Route: 042
     Dates: start: 20230321

REACTIONS (5)
  - Abdominal pain [Unknown]
  - Pain [Unknown]
  - Dizziness [Unknown]
  - Pyrexia [Recovering/Resolving]
  - Intensive care [Unknown]

NARRATIVE: CASE EVENT DATE: 20230321
